FAERS Safety Report 8584678-7 (Version None)
Quarter: 2012Q3

REPORT INFORMATION
  Report Type: 
  Country: None (occurrence: None)
  Receive Date: 20120810
  Receipt Date: 20100929
  Transmission Date: 20120928
  Serious: Yes (Other)
  Sender: FDA-Public Use
  Company Number: US-PFIZER INC-2010096285

PATIENT
  Age: 49 Year
  Sex: Male
  Weight: 58.967 kg

DRUGS (3)
  1. VIAGRA [Suspect]
     Dosage: 100 MG, AS NEEDED
     Route: 048
     Dates: start: 20080101
  2. VIAGRA [Suspect]
     Indication: ERECTILE DYSFUNCTION
     Dosage: UNK
     Route: 048
     Dates: start: 20060101
  3. VIAGRA [Suspect]
     Dosage: 100 MG, THREE TIMES A WEEK
     Route: 048
     Dates: start: 20080201

REACTIONS (3)
  - NERVE COMPRESSION [None]
  - SCIATICA [None]
  - SCIATIC NERVE NEUROPATHY [None]
